FAERS Safety Report 23505843 (Version 1)
Quarter: 2024Q1

REPORT INFORMATION
  Report Type: Spontaneous
  Country: US (occurrence: US)
  Receive Date: 20240209
  Receipt Date: 20240209
  Transmission Date: 20240410
  Serious: No
  Sender: FDA-Public Use
  Company Number: US-CYCLE PHARMACEUTICALS LTD-2024-CYC-000020

PATIENT

DRUGS (1)
  1. TASCENSO ODT [Suspect]
     Active Substance: FINGOLIMOD LAURYL SULFATE
     Indication: Product used for unknown indication
     Dosage: 0.5 MG
     Route: 065
     Dates: start: 20240125

REACTIONS (1)
  - Rash [Recovered/Resolved]

NARRATIVE: CASE EVENT DATE: 20240128
